FAERS Safety Report 7002423-3 (Version None)
Quarter: 2010Q3

REPORT INFORMATION
  Report Type: 
  Country: None (occurrence: None)
  Receive Date: 20100920
  Receipt Date: 20100325
  Transmission Date: 20110219
  Serious: No
  Sender: FDA-Public Use
  Company Number: US-ASTRAZENECA-2010SE00239

PATIENT
  Age: 34 Year
  Sex: Female

DRUGS (15)
  1. SEROQUEL [Suspect]
     Route: 048
     Dates: start: 20051001
  2. HYOSYCAMINE [Concomitant]
  3. KLONOPIN [Concomitant]
  4. PLAVIX CR [Concomitant]
  5. DARVOCET [Concomitant]
  6. VICODIN [Concomitant]
  7. ATARAX [Concomitant]
  8. LEVOTHYROXINE SODIUM [Concomitant]
  9. BENICAR [Concomitant]
  10. LYRICA [Concomitant]
  11. PROMETHAZINE [Concomitant]
  12. IMITREX [Concomitant]
  13. DETROL LA [Concomitant]
  14. TOPAMAX [Concomitant]
  15. ULTRAM [Concomitant]

REACTIONS (3)
  - FEELING ABNORMAL [None]
  - INTENTIONAL DRUG MISUSE [None]
  - SOMNOLENCE [None]
